FAERS Safety Report 9153523 (Version 2)
Quarter: 2013Q1

REPORT INFORMATION
  Report Type: Spontaneous
  Country: US (occurrence: US)
  Receive Date: 20130311
  Receipt Date: 20130328
  Transmission Date: 20140127
  Serious: Yes (Hospitalization)
  Sender: FDA-Public Use
  Company Number: US-JNJFOC-20130301119

PATIENT
  Sex: Female

DRUGS (19)
  1. SIMPONI [Suspect]
     Indication: RHEUMATOID ARTHRITIS
     Route: 058
     Dates: start: 20120820
  2. SIMPONI [Suspect]
     Indication: RHEUMATOID ARTHRITIS
     Route: 058
     Dates: start: 201204, end: 2012
  3. SIMPONI [Suspect]
     Indication: PSORIATIC ARTHROPATHY
     Route: 058
     Dates: start: 201204, end: 2012
  4. SIMPONI [Suspect]
     Indication: PSORIATIC ARTHROPATHY
     Route: 058
     Dates: start: 20120820
  5. CELEBREX [Concomitant]
     Indication: ARTHRITIS
     Route: 065
     Dates: start: 2003
  6. PLAQUENIL [Concomitant]
     Indication: ARTHRITIS
     Route: 065
     Dates: start: 2010
  7. L-THYROXINE [Concomitant]
     Indication: THYROID DISORDER
     Route: 065
     Dates: start: 1963
  8. TRICOR [Concomitant]
     Indication: HIGH DENSITY LIPOPROTEIN DECREASED
     Route: 065
     Dates: start: 2003
  9. BENICAR [Concomitant]
     Indication: HYPERTENSION
     Route: 065
     Dates: start: 2003
  10. TRAMADOL [Concomitant]
     Route: 065
     Dates: start: 2003
  11. NORA-BE [Concomitant]
     Indication: HORMONE REPLACEMENT THERAPY
     Route: 065
     Dates: start: 2003
  12. ESTERIFIED ESTROGENS, METHYLTESTOSTERONE [Concomitant]
     Indication: HORMONE REPLACEMENT THERAPY
     Route: 065
     Dates: start: 2003
  13. TYLENOL PM [Concomitant]
     Route: 065
     Dates: start: 2003
  14. OCUVITE NOS [Concomitant]
     Route: 065
     Dates: start: 2003
  15. GLUCOSAMINE [Concomitant]
     Route: 065
     Dates: start: 2003
  16. LOMOTIL [Concomitant]
     Route: 065
     Dates: start: 2003
  17. MAGNESIUM [Concomitant]
     Route: 065
     Dates: start: 2003
  18. MULTIVITAMINS [Concomitant]
     Route: 065
     Dates: start: 2003
  19. CITRACAL D [Concomitant]
     Route: 065
     Dates: start: 2003

REACTIONS (3)
  - Hip arthroplasty [Recovered/Resolved]
  - Drug dose omission [Not Recovered/Not Resolved]
  - Device malfunction [Unknown]
